FAERS Safety Report 23354665 (Version 12)
Quarter: 2025Q1

REPORT INFORMATION
  Report Type: Report from Study
  Country: AU (occurrence: AU)
  Receive Date: 20240101
  Receipt Date: 20250225
  Transmission Date: 20250409
  Serious: Yes (Hospitalization, Other)
  Sender: TAKEDA
  Company Number: AU-SA-SAC20231222001143

PATIENT
  Age: 14 Year
  Sex: Male

DRUGS (14)
  1. IDURSULFASE [Suspect]
     Active Substance: IDURSULFASE
     Indication: Mucopolysaccharidosis II
     Dosage: 24 MILLIGRAM, 1/WEEK
     Dates: start: 20231213
  2. IDURSULFASE [Suspect]
     Active Substance: IDURSULFASE
     Dosage: 24 MILLIGRAM, 1/WEEK
  3. IDURSULFASE [Suspect]
     Active Substance: IDURSULFASE
  4. IDURSULFASE [Suspect]
     Active Substance: IDURSULFASE
  5. IDURSULFASE [Suspect]
     Active Substance: IDURSULFASE
  6. IDURSULFASE [Suspect]
     Active Substance: IDURSULFASE
     Dosage: 24 MILLIGRAM, 1/WEEK
  7. IDURSULFASE [Suspect]
     Active Substance: IDURSULFASE
     Dosage: 24 MILLIGRAM, 1/WEEK
  8. IDURSULFASE [Suspect]
     Active Substance: IDURSULFASE
     Dosage: 24 MILLIGRAM, 1/WEEK
  9. IDURSULFASE [Suspect]
     Active Substance: IDURSULFASE
     Dosage: 24 MILLIGRAM, 1/WEEK
     Dates: start: 20241211, end: 20250122
  10. IDURSULFASE [Suspect]
     Active Substance: IDURSULFASE
     Dosage: 24 MILLIGRAM, 1/WEEK
  11. Hep lock [Concomitant]
  12. CETIRIZINE [Concomitant]
     Active Substance: CETIRIZINE HYDROCHLORIDE
     Indication: Premedication
  13. ACETAMINOPHEN [Concomitant]
     Active Substance: ACETAMINOPHEN
     Indication: Premedication
  14. OXYGEN [Concomitant]
     Active Substance: OXYGEN
     Indication: Premedication

REACTIONS (14)
  - Tracheal stenosis [Recovered/Resolved]
  - Laryngeal stenosis [Recovered/Resolved]
  - Increased upper airway secretion [Recovered/Resolved]
  - Respiratory rate increased [Recovered/Resolved]
  - Body temperature increased [Recovered/Resolved]
  - Apnoea [Unknown]
  - Hospitalisation [Recovered/Resolved]
  - Seizure [Unknown]
  - Cough [Not Recovered/Not Resolved]
  - Wheezing [Recovered/Resolved]
  - Dyspnoea [Not Recovered/Not Resolved]
  - Cyanosis [Unknown]
  - Obstructive airways disorder [Unknown]
  - Pyrexia [Recovered/Resolved]

NARRATIVE: CASE EVENT DATE: 20231218
